FAERS Safety Report 5864185-2 (Version None)
Quarter: 2008Q3

REPORT INFORMATION
  Report Type: 
  Country: None (occurrence: None)
  Receive Date: 20080829
  Receipt Date: 20080819
  Transmission Date: 20090109
  Serious: Yes (Life-Threatening)
  Sender: FDA-Public Use
  Company Number: JP-ROCHE-575656

PATIENT
  Sex: Male
  Weight: 42.2 kg

DRUGS (13)
  1. METHOXY POLYETHYLENE GLYCOL-EPOETIN BETA [Suspect]
     Route: 058
     Dates: start: 20071220
  2. METHOXY POLYETHYLENE GLYCOL-EPOETIN BETA [Suspect]
     Route: 058
     Dates: start: 20080117
  3. METHOXY POLYETHYLENE GLYCOL-EPOETIN BETA [Suspect]
     Route: 058
     Dates: start: 20080228
  4. METHOXY POLYETHYLENE GLYCOL-EPOETIN BETA [Suspect]
     Route: 058
     Dates: start: 20080327, end: 20080522
  5. ARGAMATE [Concomitant]
  6. CARDENALIN [Concomitant]
     Dosage: DRUG REPORTED AS DOXOZOSIN MESILATE
  7. KREMEZIN [Concomitant]
  8. ZYLORIC [Concomitant]
     Dates: start: 20071227, end: 20080424
  9. SODIUM BICARBONATE [Concomitant]
  10. NORVASC [Concomitant]
     Dates: start: 20080410
  11. VITAMEDIN [Concomitant]
  12. PERSANTINE [Concomitant]
  13. FESIN [Concomitant]
     Dates: start: 20080410

REACTIONS (1)
  - RENAL FAILURE CHRONIC [None]
